FAERS Safety Report 5795557-2 (Version None)
Quarter: 2008Q2

REPORT INFORMATION
  Report Type: 
  Country: None (occurrence: None)
  Receive Date: 20080630
  Receipt Date: 20080630
  Transmission Date: 20081010
  Serious: Yes (Hospitalization)
  Sender: FDA-Public Use
  Company Number: PHHO2005RO12937

PATIENT
  Sex: Female
  Weight: 54 kg

DRUGS (7)
  1. ACLASTA/ZOLEDRONATE T29581+A+SOLINJ+OS [Suspect]
     Indication: OSTEOPOROSIS
     Dosage: 5 MG
     Dates: start: 20040805
  2. CALCIUM [Concomitant]
     Indication: OSTEOPOROSIS
     Dosage: 1000 MG, UNK
  3. VITAMIN D [Concomitant]
     Indication: OSTEOPOROSIS
     Dosage: 400-1200
  4. METHOTREXATE [Concomitant]
     Indication: RHEUMATOID ARTHRITIS
     Dosage: 7.5 MG, QW
     Route: 048
     Dates: start: 20040301
  5. PREDNISON [Concomitant]
     Indication: RHEUMATOID ARTHRITIS
     Dosage: 7.5 MG, QD
     Route: 048
     Dates: start: 20050401
  6. ARTHROTEC [Concomitant]
     Dosage: 75 MG, QD
     Dates: end: 20050601
  7. FOLIC ACID [Concomitant]
     Dosage: 5 MG, UNK
     Route: 048

REACTIONS (3)
  - ANISOCYTOSIS [None]
  - HYPOCHROMASIA [None]
  - IRON DEFICIENCY ANAEMIA [None]
